FAERS Safety Report 11031084 (Version 1)
Quarter: 2015Q2

REPORT INFORMATION
  Report Type: Spontaneous
  Country: US (occurrence: None)
  Receive Date: 20150414
  Receipt Date: 20150414
  Transmission Date: 20150821
  Serious: Yes (Disabling)
  Sender: FDA-Public Use
  Company Number: None

PATIENT
  Age: 62 Year
  Sex: Female
  Weight: 112.49 kg

DRUGS (15)
  1. BYDUREON [Suspect]
     Active Substance: EXENATIDE
     Indication: DIABETES MELLITUS
     Dosage: INJECTED IN STOMACH
     Dates: start: 20150411, end: 20150413
  2. CRANBERRY. [Concomitant]
     Active Substance: CRANBERRY
  3. LISINOPRIL. [Concomitant]
     Active Substance: LISINOPRIL
  4. PRILOSEC [Concomitant]
     Active Substance: OMEPRAZOLE MAGNESIUM
  5. MULTI-VIT WITH IRON [Concomitant]
  6. LEVOTHYROXIN [Concomitant]
     Active Substance: LEVOTHYROXINE
  7. STOOL SOFTENER [Concomitant]
     Active Substance: DOCUSATE CALCIUM
  8. LIPITOR [Concomitant]
     Active Substance: ATORVASTATIN CALCIUM
  9. ASPIRIN. [Concomitant]
     Active Substance: ASPIRIN
  10. COREG CR [Concomitant]
     Active Substance: CARVEDILOL PHOSPHATE
  11. MELETONIN [Concomitant]
  12. ZYRTEC [Concomitant]
     Active Substance: CETIRIZINE HYDROCHLORIDE
  13. TORSEMIDE. [Concomitant]
     Active Substance: TORSEMIDE
  14. DIGOXIN. [Concomitant]
     Active Substance: DIGOXIN
  15. METFORMIN [Concomitant]
     Active Substance: METFORMIN HYDROCHLORIDE

REACTIONS (6)
  - Malaise [None]
  - Headache [None]
  - Abdominal pain upper [None]
  - Vomiting projectile [None]
  - Nausea [None]
  - Heart rate increased [None]

NARRATIVE: CASE EVENT DATE: 20150411
